FAERS Safety Report 5589667-2 (Version None)
Quarter: 2008Q1

REPORT INFORMATION
  Report Type: 
  Country: None (occurrence: None)
  Receive Date: 20080114
  Receipt Date: 20080103
  Transmission Date: 20080703
  Serious: Yes (Other)
  Sender: FDA-Public Use
  Company Number: B0376882A

PATIENT
  Age: 17 Year
  Sex: Female

DRUGS (4)
  1. PAROXETINE [Suspect]
     Route: 065
     Dates: start: 19950512
  2. IMIPRAMINE [Concomitant]
     Dates: start: 19961125
  3. PROZAC [Concomitant]
     Dates: start: 19960131, end: 19990101
  4. ST JOHNS WORT [Concomitant]
     Dates: start: 19990101, end: 20050101

REACTIONS (9)
  - AGGRESSION [None]
  - CRYING [None]
  - DEPRESSION [None]
  - DEREALISATION [None]
  - DRUG WITHDRAWAL SYNDROME [None]
  - FATIGUE [None]
  - NIGHTMARE [None]
  - SOCIAL AVOIDANT BEHAVIOUR [None]
  - SUICIDE ATTEMPT [None]
